FAERS Safety Report 8994583 (Version 1)
Quarter: 2012Q4

REPORT INFORMATION
  Report Type: Spontaneous
  Country: US (occurrence: None)
  Receive Date: 20121228
  Receipt Date: 20121228
  Transmission Date: 20130627
  Serious: Yes (Other)
  Sender: FDA-Public Use
  Company Number: None

PATIENT
  Age: 68 Year
  Sex: Male
  Weight: 83.92 kg

DRUGS (1)
  1. ATORVASTATIN [Suspect]
     Indication: TRIGLYCERIDES HIGH
     Dosage: 1 tab 1 daily po
     Route: 048
     Dates: start: 20121208, end: 20121224

REACTIONS (2)
  - Abdominal pain [None]
  - Muscle contractions involuntary [None]
